FAERS Safety Report 9354042 (Version 5)
Quarter: 2014Q2

REPORT INFORMATION
  Report Type: Spontaneous
  Country: US (occurrence: None)
  Receive Date: 20130613
  Receipt Date: 20140521
  Transmission Date: 20141212
  Serious: Yes (Life-Threatening, Hospitalization, Other)
  Sender: FDA-Public Use
  Company Number: 2013SGN00362

PATIENT
  Age: 63 Year
  Sex: Female

DRUGS (1)
  1. ADCETRIS [Suspect]
     Indication: ANAPLASTIC LARGE-CELL LYMPHOMA
     Dates: start: 2013

REACTIONS (7)
  - Abdominal pain [None]
  - Pancreatitis [None]
  - Pleural effusion [None]
  - Respiratory failure [None]
  - Legionella infection [None]
  - Viral infection [None]
  - Pyrexia [None]
